FAERS Safety Report 25628019 (Version 1)
Quarter: 2025Q3

REPORT INFORMATION
  Report Type: Spontaneous
  Country: US (occurrence: US)
  Receive Date: 20250731
  Receipt Date: 20250731
  Transmission Date: 20251020
  Serious: Yes (Other)
  Sender: AMGEN
  Company Number: US-AMGEN-USASP2025145674

PATIENT

DRUGS (1)
  1. XGEVA [Suspect]
     Active Substance: DENOSUMAB
     Indication: Bone giant cell tumour
     Dosage: 40 TO 120 MILLIGRAM, QMO TOTAL 12 CYCLES
     Route: 058

REACTIONS (1)
  - Bone giant cell tumour malignant [Unknown]
